FAERS Safety Report 7502591-0 (Version None)
Quarter: 2011Q2

REPORT INFORMATION
  Report Type: 
  Country: None (occurrence: None)
  Receive Date: 20110525
  Receipt Date: 20110517
  Transmission Date: 20111010
  Serious: Yes (Death)
  Sender: FDA-Public Use
  Company Number: GB-JNJFOC-20110508703

PATIENT
  Sex: Male

DRUGS (5)
  1. TOPIRAMATE [Suspect]
     Route: 048
  2. TOPIRAMATE [Suspect]
     Indication: EPILEPSY
     Route: 048
  3. VALPROATE SODIUM [Suspect]
     Indication: EPILEPSY
     Route: 065
  4. LAMOTRIGINE [Suspect]
     Indication: EPILEPSY
     Route: 065
  5. PHENYTOIN [Suspect]
     Indication: EPILEPSY
     Route: 065

REACTIONS (2)
  - SEPSIS [None]
  - RENAL FAILURE [None]
